FAERS Safety Report 18564017 (Version 1)
Quarter: 2020Q4

REPORT INFORMATION
  Report Type: Spontaneous
  Country: DK (occurrence: DK)
  Receive Date: 20201201
  Receipt Date: 20201201
  Transmission Date: 20210114
  Serious: Yes (Other)
  Sender: FDA-Public Use
  Company Number: DK-TEVA-2020-DK-1853317

PATIENT
  Age: 33 Year
  Sex: Male

DRUGS (3)
  1. RISPERIDON ^ACTAVIS^ [Suspect]
     Active Substance: RISPERIDONE
     Indication: SCHIZOPHRENIA
     Dosage: 2 MG
     Route: 065
  2. RISPERIDON ^TEVA^ [Suspect]
     Active Substance: RISPERIDONE
     Indication: SCHIZOPHRENIA
     Dosage: 2 MG
     Route: 065
  3. RISPERIDON ^KRKA^ [Suspect]
     Active Substance: RISPERIDONE
     Indication: SCHIZOPHRENIA
     Dosage: 2 MG
     Route: 065

REACTIONS (39)
  - Tremor [Not Recovered/Not Resolved]
  - Nasal congestion [Not Recovered/Not Resolved]
  - Off label use [Unknown]
  - Hallucination, visual [Unknown]
  - Feeling abnormal [Not Recovered/Not Resolved]
  - Paraesthesia [Unknown]
  - Self esteem decreased [Unknown]
  - Hypersomnia [Unknown]
  - Gynaecomastia [Not Recovered/Not Resolved]
  - Constipation [Not Recovered/Not Resolved]
  - Speech disorder [Unknown]
  - Product use in unapproved indication [Unknown]
  - Skin plaque [Not Recovered/Not Resolved]
  - Face oedema [Unknown]
  - Headache [Unknown]
  - Disturbance in attention [Not Recovered/Not Resolved]
  - Gastrooesophageal reflux disease [Unknown]
  - Hair growth abnormal [Unknown]
  - Dandruff [Not Recovered/Not Resolved]
  - Suicidal ideation [Unknown]
  - Erectile dysfunction [Not Recovered/Not Resolved]
  - Myalgia [Not Recovered/Not Resolved]
  - Hallucination, auditory [Unknown]
  - Pruritus [Not Recovered/Not Resolved]
  - Dry mouth [Not Recovered/Not Resolved]
  - Illness anxiety disorder [Unknown]
  - Hyperventilation [Recovering/Resolving]
  - Dyspnoea [Not Recovered/Not Resolved]
  - Memory impairment [Not Recovered/Not Resolved]
  - Syncope [Unknown]
  - Intentional self-injury [Unknown]
  - Dementia Alzheimer^s type [Unknown]
  - Vision blurred [Not Recovered/Not Resolved]
  - Sleep apnoea syndrome [Unknown]
  - Depressed mood [Unknown]
  - Breast pain [Not Recovered/Not Resolved]
  - Rash [Not Recovered/Not Resolved]
  - Gastric pH decreased [Not Recovered/Not Resolved]
  - Tinnitus [Unknown]

NARRATIVE: CASE EVENT DATE: 2011
